FAERS Safety Report 16122999 (Version 1)
Quarter: 2019Q1

REPORT INFORMATION
  Report Type: Spontaneous
  Country: IT (occurrence: GB)
  Receive Date: 20190327
  Receipt Date: 20190327
  Transmission Date: 20190418
  Serious: Yes (Other)
  Sender: FDA-Public Use
  Company Number: IT-IPSEN BIOPHARMACEUTICALS, INC.-2019-04609

PATIENT
  Age: 78 Year
  Sex: Female

DRUGS (1)
  1. BOTULINUM TOXIN TYPE A NOS [Suspect]
     Active Substance: BOTULINUM TOXIN TYPE A
     Indication: TORTICOLLIS
     Dosage: 600 UNITS (250 U LEFT SEMISPINALIS CAPITIS (SC) + 100 U RIGHT SEMISPINALIS CAPITIS (SC) + 100 U RIGH
     Route: 065

REACTIONS (1)
  - Radiculitis brachial [Recovering/Resolving]
